FAERS Safety Report 11493056 (Version 1)
Quarter: 2015Q3

REPORT INFORMATION
  Report Type: Spontaneous
  Country: AR (occurrence: AR)
  Receive Date: 20150911
  Receipt Date: 20150911
  Transmission Date: 20151125
  Serious: Yes (Hospitalization, Other)
  Sender: FDA-Public Use
  Company Number: AR-AMGEN-ARGSP2015058785

PATIENT
  Age: 89 Year
  Sex: Female

DRUGS (7)
  1. METICORTEN [Concomitant]
     Active Substance: PREDNISONE
     Dosage: UNK
  2. BISOPROLOL FUMARATE. [Concomitant]
     Active Substance: BISOPROLOL FUMARATE
     Dosage: UNK
  3. ENBREL [Suspect]
     Active Substance: ETANERCEPT
     Indication: RHEUMATOID ARTHRITIS
     Dosage: 50 MG, WEEKLY
     Route: 065
     Dates: start: 20060717
  4. ACIFOL                             /00024201/ [Concomitant]
     Dosage: UNK
  5. ARTRAIT                            /00113801/ [Concomitant]
     Active Substance: METHOTREXATE SODIUM
     Dosage: UNK
  6. CONCOR PLUS [Concomitant]
     Active Substance: BISOPROLOL FUMARATE\HYDROCHLOROTHIAZIDE
     Dosage: UNK
  7. PENSARTAN                          /01121602/ [Concomitant]
     Dosage: UNK

REACTIONS (5)
  - Abasia [Not Recovered/Not Resolved]
  - Maculopathy [Not Recovered/Not Resolved]
  - Malaise [Recovered/Resolved]
  - Visual impairment [Not Recovered/Not Resolved]
  - Pain [Not Recovered/Not Resolved]

NARRATIVE: CASE EVENT DATE: 2015
